FAERS Safety Report 4471936-0 (Version None)
Quarter: 2004Q4

REPORT INFORMATION
  Report Type: 
  Country: None (occurrence: None)
  Receive Date: 20041007
  Receipt Date: 20040927
  Transmission Date: 20050328
  Serious: Yes (Hospitalization)
  Sender: FDA-Public Use
  Company Number: 25202

PATIENT
  Age: 38 Year
  Sex: Female

DRUGS (2)
  1. NORGESIC [Suspect]
     Dosage: (2 IN 1 DAY(S)), ORAL
     Route: 048
     Dates: start: 20040707, end: 20040711
  2. WARAN [Concomitant]

REACTIONS (2)
  - DIARRHOEA [None]
  - VOMITING [None]
